FAERS Safety Report 5803941-3 (Version None)
Quarter: 2008Q3

REPORT INFORMATION
  Report Type: 
  Country: None (occurrence: None)
  Receive Date: 20080703
  Receipt Date: 20080618
  Transmission Date: 20090109
  Serious: Yes (Other)
  Sender: FDA-Public Use
  Company Number: GXKR2008US05657

PATIENT
  Age: 46 Year
  Sex: Male

DRUGS (1)
  1. METHADONE HCL [Suspect]
     Indication: CANCER PAIN
     Dosage: ,IV INFUSION
     Route: 042

REACTIONS (1)
  - HYPOGLYCAEMIA [None]
